FAERS Safety Report 9024627 (Version 1)
Quarter: 2013Q1

REPORT INFORMATION
  Report Type: Spontaneous
  Country: US (occurrence: US)
  Receive Date: 20130120
  Receipt Date: 20130120
  Transmission Date: 20140127
  Serious: Yes (Hospitalization)
  Sender: FDA-Public Use
  Company Number: US-AMGEN-USASP2013002905

PATIENT
  Sex: Male

DRUGS (2)
  1. XGEVA [Suspect]
     Indication: PROSTATE CANCER METASTATIC
     Dosage: UNK
     Dates: start: 20120921, end: 20121019
  2. LUPRON [Concomitant]

REACTIONS (9)
  - Pancreatitis [Recovered/Resolved]
  - Muscle spasms [Unknown]
  - Sinusitis [Recovering/Resolving]
  - Oral herpes [Recovering/Resolving]
  - Impaired healing [Recovering/Resolving]
  - Tooth disorder [Unknown]
  - Cough [Unknown]
  - Nausea [Recovered/Resolved]
  - Diarrhoea [Unknown]
